FAERS Safety Report 7508924-3 (Version None)
Quarter: 2011Q2

REPORT INFORMATION
  Report Type: 
  Country: None (occurrence: None)
  Receive Date: 20110527
  Receipt Date: 20110316
  Transmission Date: 20111010
  Serious: No
  Sender: FDA-Public Use
  Company Number: US-MYLANLABS-2011S1005717

PATIENT
  Age: 46 Year
  Sex: Male
  Weight: 79.38 kg

DRUGS (2)
  1. TOPAMAX [Concomitant]
     Indication: MIGRAINE
     Route: 048
  2. SUMATRIPTAN SUCCINATE [Suspect]
     Indication: MIGRAINE
     Route: 048
     Dates: start: 20100101

REACTIONS (2)
  - DRUG INEFFECTIVE [None]
  - MIGRAINE [None]
